FAERS Safety Report 15995536 (Version 1)
Quarter: 2019Q1

REPORT INFORMATION
  Report Type: Spontaneous
  Country: FR (occurrence: FR)
  Receive Date: 20190222
  Receipt Date: 20190222
  Transmission Date: 20190418
  Serious: Yes (Hospitalization)
  Sender: FDA-Public Use
  Company Number: PHHY2019FR039734

PATIENT
  Age: 38 Year
  Sex: Male

DRUGS (2)
  1. DEPAKINE [Suspect]
     Active Substance: VALPROATE SODIUM
     Indication: POISONING DELIBERATE
     Dosage: 120 DF, UNK
     Route: 048
     Dates: start: 20181117, end: 20181117
  2. PARACETAMOL [Suspect]
     Active Substance: ACETAMINOPHEN
     Indication: POISONING DELIBERATE
     Dosage: 11 G, UNK
     Route: 048
     Dates: start: 20181117, end: 20181117

REACTIONS (3)
  - Dizziness [Recovered/Resolved]
  - Poisoning deliberate [Recovered/Resolved]
  - Hepatocellular injury [Recovered/Resolved]

NARRATIVE: CASE EVENT DATE: 20181117
